FAERS Safety Report 6709630-5 (Version None)
Quarter: 2010Q2

REPORT INFORMATION
  Report Type: 
  Country: None (occurrence: None)
  Receive Date: 20100504
  Receipt Date: 20100426
  Transmission Date: 20101027
  Serious: Yes (Other)
  Sender: FDA-Public Use
  Company Number: US-ROCHE-699152

PATIENT

DRUGS (1)
  1. ZENAPAX [Suspect]
     Dosage: FORM: INFUSION, FOR FIVE WEEKS, OTHER INDICATION: PURE RED CELL APLASIA
     Route: 042

REACTIONS (3)
  - BRONCHIAL HYPERREACTIVITY [None]
  - RASH [None]
  - RHEUMATOID ARTHRITIS [None]
